FAERS Safety Report 11742651 (Version 1)
Quarter: 2015Q4

REPORT INFORMATION
  Report Type: Spontaneous
  Country: US (occurrence: None)
  Receive Date: 20151113
  Receipt Date: 20151113
  Transmission Date: 20160304
  Serious: Yes (Life-Threatening)
  Sender: FDA-Public Use
  Company Number: None

PATIENT
  Age: 80 Year
  Sex: Male
  Weight: 91 kg

DRUGS (5)
  1. HYDROMORPHONE [Concomitant]
     Active Substance: HYDROMORPHONE
  2. VALIUM [Concomitant]
     Active Substance: DIAZEPAM
  3. VERSED [Concomitant]
     Active Substance: MIDAZOLAM HYDROCHLORIDE
  4. EXPAREL [Suspect]
     Active Substance: BUPIVACAINE
     Indication: PAIN MANAGEMENT
     Dosage: IN SURGERY?1 VIAL
     Route: 030
     Dates: start: 20151012, end: 20151012
  5. ATIVAN [Concomitant]
     Active Substance: LORAZEPAM

REACTIONS (10)
  - Toxicity to various agents [None]
  - Restlessness [None]
  - Tremor [None]
  - Pulse absent [None]
  - Agitation [None]
  - Pain [None]
  - Facial spasm [None]
  - Cardio-respiratory arrest [None]
  - Confusional state [None]
  - Seizure [None]

NARRATIVE: CASE EVENT DATE: 20151012
